FAERS Safety Report 5307703-5 (Version None)
Quarter: 2007Q2

REPORT INFORMATION
  Report Type: 
  Country: None (occurrence: None)
  Receive Date: 20070419
  Receipt Date: 20070405
  Transmission Date: 20071010
  Serious: Yes (Hospitalization)
  Sender: FDA-Public Use
  Company Number: 2007US000648

PATIENT
  Age: 28 Year
  Sex: Female
  Weight: 99.8 kg

DRUGS (5)
  1. AMEVIVE [Suspect]
     Indication: PSORIASIS
     Dosage: , INTRAMUSCULAR
     Route: 030
     Dates: start: 20051201
  2. DOXYCYCLINE (DOXYCYCLINE HYCLATE) [Concomitant]
  3. FLAGYL [Concomitant]
  4. LEXAPRO [Concomitant]
  5. LORTAB [Concomitant]

REACTIONS (6)
  - CONSTIPATION [None]
  - NAUSEA [None]
  - PELVIC INFLAMMATORY DISEASE [None]
  - VAGINITIS GARDNERELLA [None]
  - VOMITING [None]
  - WEIGHT DECREASED [None]
